FAERS Safety Report 7824936-4 (Version None)
Quarter: 2011Q4

REPORT INFORMATION
  Report Type: 
  Country: None (occurrence: None)
  Receive Date: 20111019
  Receipt Date: 20110826
  Transmission Date: 20120403
  Serious: No
  Sender: FDA-Public Use
  Company Number: US-BRISTOL-MYERS SQUIBB COMPANY-15582596

PATIENT
  Age: 64 Year
  Sex: Female

DRUGS (3)
  1. AVALIDE [Suspect]
     Dosage: 1DF=150/12.5 MG FOR 2 OR 3 YEARS
  2. VITAMIN TAB [Concomitant]
  3. AMLODIPINE [Concomitant]

REACTIONS (4)
  - JOINT SWELLING [None]
  - DRUG INEFFECTIVE [None]
  - SENSATION OF HEAVINESS [None]
  - WEIGHT INCREASED [None]
